FAERS Safety Report 25464639 (Version 4)
Quarter: 2025Q3

REPORT INFORMATION
  Report Type: Spontaneous
  Country: CH (occurrence: CH)
  Receive Date: 20250621
  Receipt Date: 20250822
  Transmission Date: 20251021
  Serious: Yes (Death, Other)
  Sender: ALEXION PHARMACEUTICALS
  Company Number: CH-ASTRAZENECA-202506EEA017176CH

PATIENT
  Sex: Female
  Weight: 60 kg

DRUGS (10)
  1. ULTOMIRIS [Suspect]
     Active Substance: RAVULIZUMAB-CWVZ
     Dosage: 3300 MILLIGRAM, Q8W (60 DAYS BETWEEN ADMINISTRATION)
     Dates: start: 2012
  2. ULTOMIRIS [Suspect]
     Active Substance: RAVULIZUMAB-CWVZ
     Dosage: 3300 MILLIGRAM, Q8W
     Dates: start: 20220421, end: 20250219
  3. PANTOPRAZOLE [Concomitant]
     Active Substance: PANTOPRAZOLE
     Route: 065
  4. MAGNESIUM ASPARTATE HYDROCHLORIDE [Concomitant]
     Active Substance: MAGNESIUM ASPARTATE HYDROCHLORIDE
     Indication: Magnesium deficiency
  5. CIPROFLOXACIN [Concomitant]
     Active Substance: CIPROFLOXACIN
     Indication: Infection
     Dosage: 500 MILLIGRAM, BID FOR 5 DAYS
     Route: 065
     Dates: start: 20230126
  6. AUGMENTIN [Concomitant]
     Active Substance: AMOXICILLIN\CLAVULANATE POTASSIUM
     Indication: Antibiotic therapy
     Route: 065
  7. AMLODIPINE\PERINDOPRIL [Concomitant]
     Active Substance: AMLODIPINE\PERINDOPRIL
     Indication: Hypertension
     Route: 065
  8. XARELTO [Concomitant]
     Active Substance: RIVAROXABAN
     Indication: Anticoagulant therapy
     Route: 065
  9. Novalgin [Concomitant]
     Indication: Pain
     Route: 065
  10. Paracetamol axapharm [Concomitant]
     Indication: Pain
     Route: 065

REACTIONS (36)
  - Septic shock [Fatal]
  - Nephrolithiasis [Not Recovered/Not Resolved]
  - Haptoglobin decreased [Unknown]
  - Urinary tract infection [Not Recovered/Not Resolved]
  - Prothrombin time shortened [Unknown]
  - Activated partial thromboplastin time prolonged [Unknown]
  - Haemoglobin decreased [Unknown]
  - Haematocrit decreased [Unknown]
  - Red blood cell count decreased [Unknown]
  - Mean cell volume decreased [Unknown]
  - Mean cell haemoglobin increased [Unknown]
  - Red blood cell macrocytes present [Unknown]
  - Red cell distribution width increased [Unknown]
  - Reticulocyte count increased [Unknown]
  - Monocyte count decreased [Unknown]
  - Glomerular filtration rate decreased [Unknown]
  - Blood bilirubin increased [Unknown]
  - Blood lactate dehydrogenase increased [Unknown]
  - White blood cell count increased [Unknown]
  - Blood glucose increased [Unknown]
  - Aspartate aminotransferase increased [Unknown]
  - C-reactive protein increased [Unknown]
  - Platelet count decreased [Unknown]
  - White blood cell count decreased [Unknown]
  - Neutrophil count decreased [Unknown]
  - Lymphocyte count decreased [Unknown]
  - Blood creatinine decreased [Unknown]
  - Blood alkaline phosphatase increased [Unknown]
  - Gamma-glutamyltransferase increased [Unknown]
  - Blood iron decreased [Unknown]
  - Transferrin saturation decreased [Unknown]
  - Serum ferritin increased [Unknown]
  - Alanine aminotransferase increased [Unknown]
  - Blood magnesium decreased [Unknown]
  - Blood albumin decreased [Unknown]
  - Procalcitonin increased [Unknown]

NARRATIVE: CASE EVENT DATE: 20230327
